FAERS Safety Report 10287327 (Version 1)
Quarter: 2014Q3

REPORT INFORMATION
  Report Type: Spontaneous
  Country: US (occurrence: US)
  Receive Date: 20140709
  Receipt Date: 20140709
  Transmission Date: 20150326
  Serious: Yes (Death)
  Sender: FDA-Public Use
  Company Number: US-BRISTOL-MYERS SQUIBB COMPANY-21134648

PATIENT
  Age: 65 Year
  Sex: Female

DRUGS (1)
  1. BYETTA [Suspect]
     Active Substance: EXENATIDE
     Dates: start: 20080430, end: 201204

REACTIONS (1)
  - Pancreatic carcinoma metastatic [Fatal]

NARRATIVE: CASE EVENT DATE: 20120412
